FAERS Safety Report 6138751-3 (Version None)
Quarter: 2009Q1

REPORT INFORMATION
  Report Type: 
  Country: None (occurrence: None)
  Receive Date: 20090327
  Receipt Date: 20090323
  Transmission Date: 20090719
  Serious: Yes (Life-Threatening)
  Sender: FDA-Public Use
  Company Number: 2009JP001676

PATIENT
  Sex: Female

DRUGS (2)
  1. FUNGUARD(MICAFUNGIN) INJECTION [Suspect]
     Dosage: 300 MG, UNKNOWN/D, IV DRIP
     Route: 041
     Dates: start: 20081022, end: 20081029
  2. FUNGUARD(MICAFUNGIN) INJECTION [Suspect]
     Dosage: 300 MG, UNKNOWN/D, IV DRIP
     Route: 041
     Dates: start: 20081102, end: 20081107

REACTIONS (2)
  - ORGANISING PNEUMONIA [None]
  - RENAL DISORDER [None]
